FAERS Safety Report 4273137-8 (Version None)
Quarter: 2004Q1

REPORT INFORMATION
  Report Type: 
  Country: None (occurrence: None)
  Receive Date: 20040116
  Receipt Date: 20040107
  Transmission Date: 20041129
  Serious: Yes (Hospitalization)
  Sender: FDA-Public Use
  Company Number: HU-GLAXOSMITHKLINE-B0319069A

PATIENT
  Age: 29 Year
  Sex: Male

DRUGS (5)
  1. ZIDOVUDINE [Suspect]
     Indication: HIV INFECTION
     Route: 065
  2. RITONAVIR [Suspect]
     Indication: HIV INFECTION
     Route: 065
  3. SAQUINAVIR [Suspect]
     Indication: HIV INFECTION
     Route: 065
  4. DIDANOSINE [Concomitant]
     Indication: HIV INFECTION
  5. LAMIVUDINE [Concomitant]
     Indication: HIV INFECTION
     Route: 065

REACTIONS (7)
  - ANOREXIA [None]
  - COUGH [None]
  - LUNG INFILTRATION [None]
  - MYCOBACTERIAL INFECTION [None]
  - NIGHT SWEATS [None]
  - PYREXIA [None]
  - WEIGHT DECREASED [None]
